FAERS Safety Report 9638628 (Version 2)
Quarter: 2014Q1

REPORT INFORMATION
  Report Type: Spontaneous
  Country: US (occurrence: US)
  Receive Date: 20131022
  Receipt Date: 20140122
  Transmission Date: 20141002
  Serious: No
  Sender: FDA-Public Use
  Company Number: US-BRISTOL-MYERS SQUIBB COMPANY-19428531

PATIENT
  Age: 82 Year
  Sex: Female

DRUGS (3)
  1. ELIQUIS [Suspect]
     Indication: ATRIAL FIBRILLATION
     Dosage: ABOUT A MONTH OR 6 WEEKS NOW
     Route: 048
     Dates: start: 20130910
  2. KLOR-CON [Concomitant]
  3. AMLODIPINE [Concomitant]

REACTIONS (1)
  - Upper respiratory tract infection [Not Recovered/Not Resolved]
